FAERS Safety Report 8775441 (Version 1)
Quarter: 2012Q4

REPORT INFORMATION
  Report Type: 
  Country: US (occurrence: US)
  Receive Date: 20120910
  Receipt Date: 20120910
  Transmission Date: 20130627
  Serious: Yes (Hospitalization)
  Sender: FDA-Public Use
  Company Number: US-ASTRAZENECA-2012SE69285

PATIENT
  Age: 14 Year
  Sex: Female
  Weight: 81.6 kg

DRUGS (6)
  1. SEROQUEL [Suspect]
     Indication: BIPOLAR DISORDER
     Route: 048
     Dates: start: 2012, end: 20120829
  2. SEROQUEL [Suspect]
     Indication: BIPOLAR DISORDER
     Route: 048
     Dates: start: 20120830
  3. LITHIUM [Concomitant]
     Indication: BIPOLAR DISORDER
     Route: 048
  4. LITHIUM [Concomitant]
     Indication: BIPOLAR DISORDER
     Route: 048
  5. KLONOPIN [Concomitant]
     Indication: ANXIETY
     Dosage: 0.5mg BID and PRN 1x
     Route: 048
  6. ESCITALOPRAM [Concomitant]
     Indication: DEPRESSION
     Route: 048

REACTIONS (8)
  - Overdose [Unknown]
  - Suicidal ideation [Unknown]
  - Physical assault [Unknown]
  - Intentional self-injury [Unknown]
  - Hallucination, auditory [Unknown]
  - Hallucination, visual [Unknown]
  - Schizophrenia [Unknown]
  - Weight increased [Unknown]
